FAERS Safety Report 11991401 (Version 2)
Quarter: 2017Q1

REPORT INFORMATION
  Report Type: Spontaneous
  Country: US (occurrence: US)
  Receive Date: 20160203
  Receipt Date: 20170309
  Transmission Date: 20170428
  Serious: No
  Sender: FDA-Public Use
  Company Number: US-JNJFOC-20160106405

PATIENT
  Sex: Male

DRUGS (7)
  1. RISPERDAL CONSTA [Suspect]
     Active Substance: RISPERIDONE
     Indication: ABNORMAL BEHAVIOUR
     Route: 030
     Dates: start: 20090723, end: 2009
  2. RISPERDAL CONSTA [Suspect]
     Active Substance: RISPERIDONE
     Indication: ABNORMAL BEHAVIOUR
     Route: 030
     Dates: start: 20090529, end: 2009
  3. RISPERDAL CONSTA [Suspect]
     Active Substance: RISPERIDONE
     Indication: MALAISE
     Route: 030
     Dates: start: 20090529, end: 2009
  4. INVEGA [Suspect]
     Active Substance: PALIPERIDONE
     Indication: DELUSIONAL DISORDER, UNSPECIFIED TYPE
     Route: 048
     Dates: start: 20090723, end: 20090805
  5. RISPERDAL CONSTA [Suspect]
     Active Substance: RISPERIDONE
     Indication: MALAISE
     Route: 030
     Dates: start: 20090723, end: 2009
  6. INVEGA SUSTENNA [Suspect]
     Active Substance: PALIPERIDONE PALMITATE
     Indication: ABNORMAL BEHAVIOUR
     Dosage: VARIABLE DOSES OF 117.0 MG AND 156.0 MG
     Route: 030
     Dates: start: 2009, end: 2009
  7. INVEGA SUSTENNA [Suspect]
     Active Substance: PALIPERIDONE PALMITATE
     Indication: ABNORMAL BEHAVIOUR
     Dosage: VARIABLE DOSES OF 117.0 MG AND 156.0 MG
     Route: 030
     Dates: end: 2014

REACTIONS (4)
  - Akathisia [Unknown]
  - Gynaecomastia [Unknown]
  - Blood prolactin increased [Unknown]
  - Obesity [Unknown]

NARRATIVE: CASE EVENT DATE: 2010
